FAERS Safety Report 11771108 (Version 3)
Quarter: 2018Q4

REPORT INFORMATION
  Report Type: Spontaneous
  Country: FR (occurrence: FR)
  Receive Date: 20151124
  Receipt Date: 20181113
  Transmission Date: 20190204
  Serious: Yes (Life-Threatening, Hospitalization, Other)
  Sender: FDA-Public Use
  Company Number: FR-AUROBINDO-AUR-APL-2015-10548

PATIENT
  Age: 71 Year
  Sex: Female

DRUGS (4)
  1. FLUINDIONE [Concomitant]
     Active Substance: FLUINDIONE
     Indication: PRODUCT USED FOR UNKNOWN INDICATION
     Dosage: UNK
     Route: 065
  2. CLOPIDOGREL [Suspect]
     Active Substance: CLOPIDOGREL BISULFATE
     Indication: ANTICOAGULANT THERAPY
     Dosage: 75 MG, UNK
     Route: 065
  3. AMIODARONE [Concomitant]
     Active Substance: AMIODARONE
     Indication: PRODUCT USED FOR UNKNOWN INDICATION
     Dosage: UNK
     Route: 065
  4. ASPIRIN. [Concomitant]
     Active Substance: ASPIRIN
     Indication: ANTICOAGULANT THERAPY
     Dosage: 75 MG, UNK
     Route: 065

REACTIONS (5)
  - Cardiac arrest [Recovered/Resolved]
  - Drug resistance [Recovered/Resolved]
  - Electrocardiogram ST segment elevation [Recovered/Resolved]
  - Ventricular fibrillation [Recovered/Resolved]
  - Vascular stent thrombosis [Recovered/Resolved]
